FAERS Safety Report 16370493 (Version 2)
Quarter: 2019Q3

REPORT INFORMATION
  Report Type: Spontaneous
  Country: FR (occurrence: FR)
  Receive Date: 20190530
  Receipt Date: 20190830
  Transmission Date: 20191004
  Serious: Yes (Other)
  Sender: FDA-Public Use
  Company Number: FR-SUN PHARMACEUTICAL INDUSTRIES LTD-2019RR-209173

PATIENT
  Age: 56 Year
  Sex: Female

DRUGS (5)
  1. CISPLATIN. [Suspect]
     Active Substance: CISPLATIN
     Indication: LUNG ADENOCARCINOMA
     Dosage: ()
     Route: 065
  2. FOLINIC ACID [Concomitant]
     Active Substance: LEUCOVORIN
     Indication: SUPPLEMENTATION THERAPY
     Dosage: UNK ()
     Route: 065
     Dates: start: 2009
  3. GEMCITABINE. [Concomitant]
     Active Substance: GEMCITABINE
     Indication: LUNG ADENOCARCINOMA
     Dosage: ()
     Route: 065
  4. PEMETREXED. [Suspect]
     Active Substance: PEMETREXED
     Indication: LUNG ADENOCARCINOMA
     Dosage: 500 MG, TIW
     Route: 065
     Dates: start: 2009
  5. DICLOFENAC [Suspect]
     Active Substance: DICLOFENAC
     Indication: PAIN
     Dosage: ()
     Route: 065

REACTIONS (9)
  - Eyelid oedema [Unknown]
  - Acute kidney injury [Unknown]
  - Nephropathy toxic [Unknown]
  - Chronic kidney disease [Not Recovered/Not Resolved]
  - Renal tubular necrosis [Unknown]
  - Anaemia [Unknown]
  - Blood creatinine increased [Unknown]
  - Proteinuria [Unknown]
  - Kidney fibrosis [Unknown]
